FAERS Safety Report 26037671 (Version 2)
Quarter: 2025Q4

REPORT INFORMATION
  Report Type: Report from Study
  Country: US (occurrence: US)
  Receive Date: 20251112
  Receipt Date: 20251119
  Transmission Date: 20260118
  Serious: Yes (Other)
  Sender: ABBVIE
  Company Number: US-ABBVIE-6538056

PATIENT
  Age: 70 Year
  Sex: Female
  Weight: 102 kg

DRUGS (2)
  1. SKYRIZI [Suspect]
     Active Substance: RISANKIZUMAB-RZAA
     Indication: Psoriatic arthropathy
     Dosage: DOSAGE: 150 MG/ML FORM STRENGTH: 150 MILLIGRAM/MILLILITERS?DOSE FORM-SOLUTION FOR INJECTION IN PR...
     Route: 058
     Dates: end: 2025
  2. SKYRIZI [Suspect]
     Active Substance: RISANKIZUMAB-RZAA
     Dosage: DOSAGE: 150 MG/ML FORM STRENGTH: 150 MILLIGRAM/MILLILITERS?DOSE FORM-SOLUTION FOR INJECTION IN PR...
     Route: 058
     Dates: start: 202502

REACTIONS (2)
  - Breast cancer stage III [Not Recovered/Not Resolved]
  - Breast cancer stage I [Recovered/Resolved]

NARRATIVE: CASE EVENT DATE: 20190101
